FAERS Safety Report 5892184-3 (Version None)
Quarter: 2008Q3

REPORT INFORMATION
  Report Type: 
  Country: None (occurrence: None)
  Receive Date: 20080918
  Receipt Date: 20080909
  Transmission Date: 20090109
  Serious: Yes (Other)
  Sender: FDA-Public Use
  Company Number: 2008SP018872

PATIENT
  Sex: Female

DRUGS (2)
  1. RIBAVIRIN [Suspect]
     Indication: HEPATITIS C
     Dosage: ; QD; PO
     Route: 048
  2. INTRON A [Suspect]
     Indication: HEPATITIS C
     Dosage: 3 MIU; TIW; SC
     Route: 058

REACTIONS (2)
  - HYPERTHYROIDISM [None]
  - THYROID DISORDER [None]
